FAERS Safety Report 23311077 (Version 2)
Quarter: 2024Q1

REPORT INFORMATION
  Report Type: Spontaneous
  Country: JP (occurrence: JP)
  Receive Date: 20231218
  Receipt Date: 20240105
  Transmission Date: 20240410
  Serious: Yes (Hospitalization)
  Sender: FDA-Public Use
  Company Number: JP-ELI_LILLY_AND_COMPANY-JP202312007953

PATIENT
  Age: 82 Year
  Sex: Male
  Weight: 49 kg

DRUGS (3)
  1. INSULIN GLARGINE [Suspect]
     Active Substance: INSULIN GLARGINE
     Indication: Type 2 diabetes mellitus
     Dosage: 10 INTERNATIONAL UNIT, DAILY
     Route: 058
     Dates: start: 20230704
  2. NOVORAPID [Suspect]
     Active Substance: INSULIN ASPART
     Indication: Type 2 diabetes mellitus
     Dosage: 9 INTERNATIONAL UNIT, DAILY
     Route: 058
     Dates: start: 20230704, end: 20230705
  3. NOVORAPID [Suspect]
     Active Substance: INSULIN ASPART
     Dosage: 11 INTERNATIONAL UNIT
     Route: 058
     Dates: start: 20230705, end: 20230706

REACTIONS (2)
  - Cerebral infarction [Recovering/Resolving]
  - Hypoglycaemia [Recovering/Resolving]

NARRATIVE: CASE EVENT DATE: 20230706
